FAERS Safety Report 18398891 (Version 4)
Quarter: 2020Q4

REPORT INFORMATION
  Report Type: Spontaneous
  Country: GB (occurrence: GB)
  Receive Date: 20201019
  Receipt Date: 20201130
  Transmission Date: 20210114
  Serious: Yes (Hospitalization, Other)
  Sender: FDA-Public Use
  Company Number: GB-MYLANLABS-2020M1087402

PATIENT
  Sex: Female

DRUGS (2)
  1. CLOZARIL [Suspect]
     Active Substance: CLOZAPINE
     Indication: SCHIZOPHRENIA
     Dosage: UNK
     Route: 048
     Dates: start: 20120123
  2. CLOZARIL [Suspect]
     Active Substance: CLOZAPINE
     Indication: BIPOLAR DISORDER
     Dosage: 200 MILLIGRAM, BID (200MG IN MORNING AND 200MG IN EVENING)
     Dates: end: 20201027

REACTIONS (5)
  - Mental disorder [Unknown]
  - Malaise [Not Recovered/Not Resolved]
  - Sepsis [Unknown]
  - Treatment noncompliance [Unknown]
  - Suspected COVID-19 [Unknown]
